FAERS Safety Report 8601062 (Version 2)
Quarter: 2013Q4

REPORT INFORMATION
  Report Type: Spontaneous
  Country: US (occurrence: US)
  Receive Date: 20120606
  Receipt Date: 20131115
  Transmission Date: 20140711
  Serious: Yes (Death)
  Sender: FDA-Public Use
  Company Number: US-ROCHE-1075441

PATIENT
  Sex: Male

DRUGS (34)
  1. AVASTIN [Suspect]
     Indication: GASTRIC CANCER
     Route: 042
  2. AVASTIN [Suspect]
     Indication: GASTRIC CANCER
     Dosage: 27/JUL/2011, 10/AUG/2011
     Route: 042
     Dates: end: 20110706
  3. AVASTIN [Suspect]
     Route: 042
     Dates: end: 20110824
  4. XELODA [Suspect]
     Indication: PRODUCT USED FOR UNKNOWN INDICATION
     Route: 065
  5. LEUCOVORIN [Concomitant]
     Dosage: 27/JUL/2011, 10/AUG/2011, 24/AUG/2011
     Route: 042
     Dates: start: 20110706
  6. 5-FU [Concomitant]
     Dosage: 27/JUL/2011, 10/AUG/2011
     Route: 042
     Dates: start: 20110706
  7. ELOXATIN [Concomitant]
  8. ALOXI [Concomitant]
     Dosage: 27/JUL/2011, 10/AUG/2011, 24/AUG/2011 WITH 0.25MG/5ML
     Route: 042
     Dates: start: 20110706
  9. ARANESP [Concomitant]
     Dosage: EVERY 2 WEEKS
     Route: 065
  10. ARANESP [Concomitant]
     Dosage: EVERY 2 WEEKS
     Route: 058
     Dates: start: 20110630
  11. ARANESP [Concomitant]
     Dosage: EVERY 2 WEEKS
     Route: 058
     Dates: start: 20110714
  12. ASPRIN-EC [Concomitant]
     Route: 048
  13. CALCIUM GLUCONATE [Concomitant]
     Dosage: ON 27/JUL/2011, 10/AUG/2011, 24/AUG/2011
     Route: 042
     Dates: start: 20110706
  14. DEXAMETHASONE [Concomitant]
     Dosage: 3 DAYS AFTER CHEMOTHERAPY
     Route: 065
  15. DEXAMETHASONE [Concomitant]
     Dosage: 27/JUL/2011, 10/AUG/2011, 24/AUG/2011
     Route: 065
     Dates: start: 20110706
  16. FLUOROURACIL [Concomitant]
     Dosage: OVER 46 HOURS EVERY 2 WEEKS
     Route: 042
  17. HYDROCHLOROTHIAZIDE [Concomitant]
     Route: 048
  18. LEUCOVORIN CALCIUM [Concomitant]
     Route: 042
  19. MAGNESIUM OXIDE [Concomitant]
     Route: 048
  20. MAGNESIUM SULFATE [Concomitant]
     Dosage: PRIOR TO AND POST OXALIPLATIN
     Route: 042
  21. MAGNESIUM SULFATE [Concomitant]
     Dosage: 27/JUL/2011,10/AUG/2011, 24/AUG/2011 PRIOR TO AND POST OXALIPLATIN
     Route: 042
     Dates: start: 20110706
  22. METOPROLOL TARTRATE [Concomitant]
     Dosage: TAKE 1/2 TABLET TWICE A DAY
     Route: 048
  23. NORVASC [Concomitant]
     Route: 048
  24. OXALIPLATIN [Concomitant]
     Dosage: EVERY TWO WEEKS
     Route: 042
  25. OXALIPLATIN [Concomitant]
     Dosage: 27/JUL/2011, 10/AUG/2011, 24/AUG/2011
     Route: 042
     Dates: start: 20110706
  26. POTASSIUM CHLORIDE ERT [Concomitant]
     Route: 048
  27. PREDNISONE [Concomitant]
     Route: 048
  28. PRILOSEC [Concomitant]
     Route: 065
  29. PROCHLORPERAZINE MALEATE [Concomitant]
     Dosage: EVERY 6 HOURS AS NEEDED
     Route: 065
  30. PYRIDOXINE [Concomitant]
     Route: 048
  31. TAMSULOSINE [Concomitant]
     Route: 048
  32. ULORIC [Concomitant]
     Route: 048
  33. HEPARIN [Concomitant]
     Dosage: 27/JUL/2011, 10/AUG/2011, 24/AUG/2011
     Route: 065
     Dates: start: 20110706
  34. NORMAL SALINE [Concomitant]
     Dosage: 27/JUL/2011, 10/AUG/2011, 24/AUG/2011
     Route: 042
     Dates: start: 20110706

REACTIONS (14)
  - Death [Fatal]
  - Abdominal rigidity [Unknown]
  - Muscle spasms [Unknown]
  - Nipple pain [Unknown]
  - Weight decreased [Unknown]
  - Dysphagia [Unknown]
  - Fatigue [Unknown]
  - Oesophageal pain [Unknown]
  - Neuropathy peripheral [Unknown]
  - Diarrhoea [Unknown]
  - Cough [Unknown]
  - Increased tendency to bruise [Unknown]
  - Anaemia [Unknown]
  - Renal failure [Unknown]
